FAERS Safety Report 8182353-4 (Version None)
Quarter: 2012Q1

REPORT INFORMATION
  Report Type: 
  Country: None (occurrence: None)
  Receive Date: 20120303
  Receipt Date: 20120220
  Transmission Date: 20120608
  Serious: Yes (Life-Threatening)
  Sender: FDA-Public Use
  Company Number: JP-AMGEN-JPNCT2011043986

PATIENT
  Age: 80 Year
  Sex: Male
  Weight: 63 kg

DRUGS (19)
  1. METHOTREXATE [Concomitant]
     Dosage: 6 MG, WEEKLY
     Route: 048
     Dates: start: 20080528, end: 20080610
  2. PREDNISOLONE [Concomitant]
     Indication: RHEUMATOID ARTHRITIS
     Dosage: 2.5 MG, 1X/DAY
     Route: 048
     Dates: start: 20080111, end: 20081210
  3. ETANERCEPT [Suspect]
     Dosage: 50 MG, UNK
     Dates: start: 20101027, end: 20110525
  4. LANSOPRAZOLE [Concomitant]
     Dosage: UNK
  5. ETANERCEPT [Suspect]
     Indication: RHEUMATOID ARTHRITIS
     Dosage: 25 MG, 2 TIMES/WK
     Dates: start: 20080813, end: 20101026
  6. PREDNISOLONE [Concomitant]
     Dosage: 5 MG, 1X/DAY
     Route: 048
     Dates: start: 20110713
  7. RINGEREAZE [Concomitant]
     Indication: RHEUMATOID ARTHRITIS
     Dosage: UNK
  8. PREDNISOLONE [Concomitant]
     Dosage: 2 MG, 1X/DAY
     Route: 048
     Dates: start: 20081211, end: 20090204
  9. PYRIDOXAL PHOSPHATE [Concomitant]
     Dosage: UNK
  10. METHOTREXATE [Concomitant]
     Dosage: 8 MG, WEEKLY
     Route: 048
     Dates: start: 20080611, end: 20110201
  11. PREDNISOLONE [Concomitant]
     Dosage: 1 MG, 1X/DAY
     Route: 048
     Dates: start: 20090205, end: 20090303
  12. SELBEX [Concomitant]
     Dosage: UNK
  13. AFTACH [Concomitant]
     Indication: STOMATITIS
     Dosage: UNK
     Route: 048
  14. LYRICA [Concomitant]
     Dosage: UNK
  15. ACTONEL [Concomitant]
     Dosage: UNK
  16. METHOTREXATE [Concomitant]
     Indication: RHEUMATOID ARTHRITIS
     Dosage: 4 MG, WEEKLY
     Route: 048
     Dates: start: 20080514, end: 20080527
  17. MAGMITT [Concomitant]
     Indication: CONSTIPATION
     Dosage: UNK
  18. FOLIC ACID [Concomitant]
     Dosage: UNK
  19. METHOTREXATE [Concomitant]
     Dosage: 6 MG, WEEKLY
     Dates: start: 20110202

REACTIONS (1)
  - COLON CANCER [None]
